FAERS Safety Report 23952280 (Version 2)
Quarter: 2024Q2

REPORT INFORMATION
  Report Type: Report from Study
  Country: US (occurrence: US)
  Receive Date: 20240607
  Receipt Date: 20240619
  Transmission Date: 20240715
  Serious: Yes (Other)
  Sender: FDA-Public Use
  Company Number: US-UPSHER-SMITH LABORATORIES, LLC-2024USL00443

PATIENT
  Sex: Male

DRUGS (2)
  1. ISOTRETINOIN [Suspect]
     Active Substance: ISOTRETINOIN
     Indication: Acne
     Dosage: 20 MG, 2X/DAY
     Route: 048
     Dates: start: 20231012, end: 20240514
  2. FOCALIN XR [Concomitant]
     Active Substance: DEXMETHYLPHENIDATE HYDROCHLORIDE
     Dosage: UNK
     Dates: start: 2017

REACTIONS (2)
  - Distractibility [Recovered/Resolved]
  - Hypertension [Unknown]
